FAERS Safety Report 7490216-2 (Version None)
Quarter: 2011Q2

REPORT INFORMATION
  Report Type: 
  Country: None (occurrence: None)
  Receive Date: 20110519
  Receipt Date: 20110418
  Transmission Date: 20111010
  Serious: Yes (Hospitalization, Other)
  Sender: FDA-Public Use
  Company Number: US-BAYER-201038264NA

PATIENT
  Age: 36 Year
  Sex: Female
  Weight: 117.91 kg

DRUGS (12)
  1. POTASSIUM CHLORIDE [Concomitant]
  2. TRICOR [Concomitant]
  3. HUMULIN N [INSULIN HUMAN] [Concomitant]
  4. PREVACID [Concomitant]
  5. HYDROCHLOROTHIAZIDE [Concomitant]
  6. HYDROCODONE [Concomitant]
  7. ATENOLOL [Concomitant]
  8. LABETALOL [Concomitant]
  9. METHYLDOPA [Concomitant]
  10. ALBUTEROL [Concomitant]
  11. YASMIN [Suspect]
     Indication: PRODUCT USED FOR UNKNOWN INDICATION
     Route: 048
     Dates: start: 20030701, end: 20050101
  12. NORVASC [Concomitant]

REACTIONS (6)
  - DEEP VEIN THROMBOSIS [None]
  - PULMONARY EMBOLISM [None]
  - EXERCISE TOLERANCE DECREASED [None]
  - BACK PAIN [None]
  - DYSPNOEA [None]
  - PAIN [None]
